FAERS Safety Report 20167084 (Version 2)
Quarter: 2022Q1

REPORT INFORMATION
  Report Type: Spontaneous
  Country: ES (occurrence: ES)
  Receive Date: 20211209
  Receipt Date: 20220111
  Transmission Date: 20220424
  Serious: Yes (Other)
  Sender: FDA-Public Use
  Company Number: ES-BEH-2021138552

PATIENT
  Age: 49 Year
  Sex: Male

DRUGS (1)
  1. VON WILLEBRAND FACTOR HUMAN [Suspect]
     Active Substance: VON WILLEBRAND FACTOR HUMAN
     Indication: Factor VIII deficiency
     Dosage: UNK UNK, 2/WEEK
     Route: 065
     Dates: start: 201803

REACTIONS (1)
  - Drug ineffective [Unknown]
